FAERS Safety Report 15841540 (Version 2)
Quarter: 2020Q1

REPORT INFORMATION
  Report Type: Spontaneous
  Country: GB (occurrence: GB)
  Receive Date: 20190118
  Receipt Date: 20200312
  Transmission Date: 20200409
  Serious: Yes (Hospitalization)
  Sender: FDA-Public Use
  Company Number: GB-TEVA-2019-GB-999972

PATIENT
  Age: 56 Year
  Sex: Male
  Weight: 85 kg

DRUGS (8)
  1. DOXYCYCLINE. [Concomitant]
     Active Substance: DOXYCYCLINE
  2. EDOXABAN [Concomitant]
     Active Substance: EDOXABAN TOSYLATE
  3. RAMIPRIL. [Concomitant]
     Active Substance: RAMIPRIL
  4. OMEPRAZOLE. [Concomitant]
     Active Substance: OMEPRAZOLE
  5. ATORVASTATIN [Concomitant]
     Active Substance: ATORVASTATIN
  6. OTOMIZE [Concomitant]
     Active Substance: DEXAMETHASONE\NEOMYCIN SULFATE
     Dosage: SPRAY
  7. SERTRALINE [Suspect]
     Active Substance: SERTRALINE HYDROCHLORIDE
     Indication: DEPRESSION
     Dosage: 25MG-200MG
     Route: 048
     Dates: start: 20130114, end: 20180510
  8. ATORVASTATIN [Concomitant]
     Active Substance: ATORVASTATIN

REACTIONS (2)
  - Transient ischaemic attack [Recovered/Resolved with Sequelae]
  - Abnormal weight gain [Recovered/Resolved]
